FAERS Safety Report 23886176 (Version 1)
Quarter: 2024Q2

REPORT INFORMATION
  Report Type: Spontaneous
  Country: US (occurrence: None)
  Receive Date: 20240522
  Receipt Date: 20240522
  Transmission Date: 20240716
  Serious: No
  Sender: FDA-Public Use
  Company Number: None

PATIENT
  Age: 58 Year
  Sex: Male
  Weight: 95.85 kg

DRUGS (1)
  1. TIRZEPATIDE [Suspect]
     Active Substance: TIRZEPATIDE
     Indication: Weight decreased
     Dosage: 0.6 MG/KG WEEKLY SUBCUTANEOUS?
     Route: 058

REACTIONS (4)
  - Chest discomfort [None]
  - Palpitations [None]
  - Ventricular extrasystoles [None]
  - Suspected product contamination [None]

NARRATIVE: CASE EVENT DATE: 20240512
